FAERS Safety Report 8103394-9 (Version None)
Quarter: 2011Q4

REPORT INFORMATION
  Report Type: 
  Country: None (occurrence: None)
  Receive Date: 20111222
  Receipt Date: 20111019
  Transmission Date: 20120403
  Serious: Yes (Hospitalization)
  Sender: FDA-Public Use
  Company Number: UTC-011425

PATIENT
  Age: 68 Year
  Sex: Male

DRUGS (2)
  1. TYVASO [Suspect]
     Indication: COR PULMONALE CHRONIC
     Dosage: 18 - 54 MICROGRAMS  (4 IN 1 D), INHALATION
     Route: 055
     Dates: start: 20110826
  2. REVATIO [Concomitant]

REACTIONS (3)
  - MEDICATION ERROR [None]
  - PRODUCTIVE COUGH [None]
  - RESPIRATORY DISORDER [None]
